FAERS Safety Report 9320616 (Version 5)
Quarter: 2014Q1

REPORT INFORMATION
  Report Type: Report from Study
  Country: PT (occurrence: PT)
  Receive Date: 20130531
  Receipt Date: 20140203
  Transmission Date: 20141002
  Serious: Yes (Hospitalization, Disabling, Other)
  Sender: FDA-Public Use
  Company Number: PT-ROCHE-1149756

PATIENT
  Age: 77 Year
  Sex: Female

DRUGS (7)
  1. ROACTEMRA [Suspect]
     Indication: RHEUMATOID ARTHRITIS
     Dosage: LAST DOSE WAS ADMINISTERED ON 25/JUL/2012
     Route: 042
     Dates: start: 20120412, end: 20120725
  2. ROACTEMRA [Suspect]
     Dosage: DOSE SUSPENDED
     Route: 065
     Dates: end: 20130730
  3. PLAQUENIL [Concomitant]
     Indication: RHEUMATOID ARTHRITIS
     Route: 048
  4. LEDERTREXATE [Concomitant]
     Indication: RHEUMATOID ARTHRITIS
     Route: 048
  5. LEDERTREXATE [Concomitant]
     Route: 048
  6. LEPICORTINOLO [Concomitant]
     Indication: RHEUMATOID ARTHRITIS
     Route: 048
  7. ACLASTA [Concomitant]
     Indication: OSTEOPOROSIS
     Route: 042

REACTIONS (5)
  - Diverticulitis [Recovered/Resolved]
  - Nail infection [Recovered/Resolved with Sequelae]
  - Toe amputation [Recovered/Resolved]
  - Wound [Recovering/Resolving]
  - Pseudomonas infection [Recovering/Resolving]
